FAERS Safety Report 9633562 (Version 2)
Quarter: 2013Q4

REPORT INFORMATION
  Report Type: Report from Study
  Country: AU (occurrence: AU)
  Receive Date: 20131021
  Receipt Date: 20131021
  Transmission Date: 20140711
  Serious: Yes (Hospitalization, Other)
  Sender: FDA-Public Use
  Company Number: PHHY2013AU080980

PATIENT
  Age: 19 Year
  Sex: Male
  Weight: 93 kg

DRUGS (1)
  1. CLOZARIL [Suspect]
     Indication: SCHIZOPHRENIA
     Dosage: 200 MG DAILY
     Dates: start: 20130703, end: 20130722

REACTIONS (6)
  - Myocarditis [Recovering/Resolving]
  - Sinus tachycardia [Unknown]
  - Chest pain [Unknown]
  - Troponin increased [Unknown]
  - C-reactive protein increased [Unknown]
  - White blood cell count increased [Unknown]
